FAERS Safety Report 9159198 (Version 2)
Quarter: 2013Q1

REPORT INFORMATION
  Report Type: Spontaneous
  Country: IN (occurrence: None)
  Receive Date: 20130213
  Receipt Date: 20130220
  Transmission Date: 20140127
  Serious: Yes (Other)
  Sender: FDA-Public Use
  Company Number: AUR-APL-2013-01242

PATIENT
  Age: 25 Year
  Sex: Female

DRUGS (2)
  1. LAMOTRIGINE (LAMOTRIGINE) [Suspect]
     Indication: BIPOLAR DISORDER
  2. DIVALPROEX (VALPROATE SEMISODIUM) [Suspect]
     Indication: BIPOLAR DISORDER

REACTIONS (3)
  - Stevens-Johnson syndrome [None]
  - Therapeutic response decreased [None]
  - Drug interaction [None]
